FAERS Safety Report 6983572-2 (Version None)
Quarter: 2010Q3

REPORT INFORMATION
  Report Type: 
  Country: None (occurrence: None)
  Receive Date: 20100914
  Receipt Date: 20081006
  Transmission Date: 20110219
  Serious: Yes (Other)
  Sender: FDA-Public Use
  Company Number: US-WYE-H06266208

PATIENT
  Sex: Female
  Weight: 76 kg

DRUGS (8)
  1. MYLOTARG [Suspect]
     Indication: ACUTE MYELOID LEUKAEMIA
     Dosage: 16.3 MG; FREQUENCY NOT SPECIFIED
     Route: 042
     Dates: start: 20080920
  2. ACYCLOVIR SODIUM [Concomitant]
  3. VITAMIN B6 [Concomitant]
  4. CALCIUM CARBONATE [Concomitant]
  5. FOLIC ACID [Concomitant]
  6. NYSTATIN [Concomitant]
  7. MEROPENIN [Concomitant]
  8. VANCOMYCIN [Concomitant]

REACTIONS (3)
  - ALANINE AMINOTRANSFERASE INCREASED [None]
  - ASPARTATE AMINOTRANSFERASE INCREASED [None]
  - BLOOD BILIRUBIN INCREASED [None]
